FAERS Safety Report 21328207 (Version 1)
Quarter: 2022Q3

REPORT INFORMATION
  Report Type: Report from Study
  Country: US (occurrence: US)
  Receive Date: 20220913
  Receipt Date: 20220913
  Transmission Date: 20221027
  Serious: Yes (Other)
  Sender: FDA-Public Use
  Company Number: US-BRISTOL-MYERS SQUIBB COMPANY-2022-054557

PATIENT
  Age: 77 Year
  Sex: Male
  Weight: 86.18 kg

DRUGS (15)
  1. POMALYST [Suspect]
     Active Substance: POMALIDOMIDE
     Indication: Plasma cell myeloma
     Dosage: DAILY ON DAYS 1 THROUGH 21 DAYS OF 28 DAYS CYCLE
     Route: 048
     Dates: start: 20220517
  2. POMALYST [Suspect]
     Active Substance: POMALIDOMIDE
     Dosage: 21 OF 28 DAYS
     Route: 048
     Dates: start: 2022
  3. POMALYST [Suspect]
     Active Substance: POMALIDOMIDE
     Dosage: DAILY ON DAYS 1 THROUGH 21 OF 28 DAYS CYCLE.
     Route: 048
     Dates: start: 2022
  4. ELOTUZUMAB [Suspect]
     Active Substance: ELOTUZUMAB
     Indication: Product used for unknown indication
     Route: 065
  5. DARZALEX [Concomitant]
     Active Substance: DARATUMUMAB
     Indication: Product used for unknown indication
  6. VITAMIN D3 [Concomitant]
     Active Substance: CHOLECALCIFEROL
     Indication: Product used for unknown indication
  7. SENNA LEAF [Concomitant]
     Active Substance: SENNA LEAF
     Indication: Product used for unknown indication
  8. GABAPENTIN [Concomitant]
     Active Substance: GABAPENTIN
     Indication: Product used for unknown indication
  9. DEXAMETHASONE [Concomitant]
     Active Substance: DEXAMETHASONE
     Indication: Product used for unknown indication
  10. OMEPRAZOLE [Concomitant]
     Active Substance: OMEPRAZOLE
     Indication: Product used for unknown indication
  11. ACYCLOVIR [Concomitant]
     Active Substance: ACYCLOVIR
     Indication: Product used for unknown indication
  12. LISINOPRIL [Concomitant]
     Active Substance: LISINOPRIL
     Indication: Product used for unknown indication
  13. FLUTICASONE PROPIONATE [Concomitant]
     Active Substance: FLUTICASONE PROPIONATE
     Indication: Product used for unknown indication
  14. ASPIRIN [Concomitant]
     Active Substance: ASPIRIN
     Indication: Product used for unknown indication
  15. KYPROLIS [Concomitant]
     Active Substance: CARFILZOMIB
     Indication: Product used for unknown indication

REACTIONS (3)
  - White blood cell count decreased [Unknown]
  - Neuropathy peripheral [Unknown]
  - Rotator cuff syndrome [Unknown]
